FAERS Safety Report 14454889 (Version 1)
Quarter: 2018Q1

REPORT INFORMATION
  Report Type: Spontaneous
  Country: US (occurrence: US)
  Receive Date: 20180129
  Receipt Date: 20180129
  Transmission Date: 20180509
  Serious: Yes (Hospitalization)
  Sender: FDA-Public Use
  Company Number: US-DSJP-DSU-2017-138316

PATIENT

DRUGS (1)
  1. BENICAR HCT [Suspect]
     Active Substance: HYDROCHLOROTHIAZIDE\OLMESARTAN MEDOXOMIL
     Indication: ESSENTIAL HYPERTENSION
     Dosage: 20/12.5 MG, QD
     Route: 048
     Dates: start: 20141103, end: 20161227

REACTIONS (8)
  - Sprue-like enteropathy [Recovering/Resolving]
  - Upper gastrointestinal haemorrhage [Unknown]
  - Gastrointestinal stromal tumour [Unknown]
  - Hiatus hernia [Unknown]
  - Large intestine polyp [Unknown]
  - Rectal haemorrhage [Unknown]
  - Diverticulum [Unknown]
  - Abdominal mass [Unknown]

NARRATIVE: CASE EVENT DATE: 20160628
